FAERS Safety Report 8525390-X (Version None)
Quarter: 2012Q3

REPORT INFORMATION
  Report Type: 
  Country: None (occurrence: None)
  Receive Date: 20120720
  Receipt Date: 20120716
  Transmission Date: 20120928
  Serious: No
  Sender: FDA-Public Use
  Company Number: CA-AMGEN-QUU399742

PATIENT
  Age: 58 Year
  Sex: Female
  Weight: 83 kg

DRUGS (8)
  1. NPLATE [Suspect]
     Indication: IDIOPATHIC THROMBOCYTOPENIC PURPURA
     Dosage: 80 MUG, QWK
     Route: 058
     Dates: start: 20100122
  2. TRAZODONE HYDROCHLORIDE [Concomitant]
  3. TRIAMTERENE AND HYDROCHLOROTHIAZIDE [Concomitant]
  4. TEVETEN [Concomitant]
  5. LORAZEPAM [Concomitant]
  6. LANSOPRAZOLE [Concomitant]
     Dosage: 30 MG, QD
  7. CELEXA [Concomitant]
  8. FAMCICLOVIR [Concomitant]

REACTIONS (9)
  - NEUROLOGICAL SYMPTOM [None]
  - ALOPECIA [None]
  - DYSPEPSIA [None]
  - MUSCULOSKELETAL PAIN [None]
  - HEADACHE [None]
  - HYPERACUSIS [None]
  - FEELING ABNORMAL [None]
  - WEIGHT INCREASED [None]
  - PAIN IN EXTREMITY [None]
